FAERS Safety Report 11541185 (Version 2)
Quarter: 2015Q4

REPORT INFORMATION
  Report Type: Spontaneous
  Country: US (occurrence: US)
  Receive Date: 20150923
  Receipt Date: 20151001
  Transmission Date: 20160304
  Serious: Yes (Hospitalization)
  Sender: FDA-Public Use
  Company Number: US-ACTELION-A-NJ2015-124131

PATIENT
  Age: 65 Year
  Sex: Female

DRUGS (12)
  1. VELETRI [Suspect]
     Active Substance: EPOPROSTENOL
     Indication: PULMONARY ARTERIAL HYPERTENSION
     Dosage: 8 NG/KG, PER MIN
     Route: 042
     Dates: start: 20150707
  2. GLIMEPIRIDE. [Concomitant]
     Active Substance: GLIMEPIRIDE
  3. POTASSIUM [Concomitant]
     Active Substance: POTASSIUM
  4. EPLERENONE. [Concomitant]
     Active Substance: EPLERENONE
  5. LISINOPRIL. [Concomitant]
     Active Substance: LISINOPRIL
  6. ASPIRIN. [Concomitant]
     Active Substance: ASPIRIN
  7. OMEPRAZOLE. [Concomitant]
     Active Substance: OMEPRAZOLE
  8. FLONASE [Concomitant]
     Active Substance: FLUTICASONE PROPIONATE
  9. TORSEMIDE. [Concomitant]
     Active Substance: TORSEMIDE
  10. DERMADEX [Concomitant]
  11. CARVEDILOL. [Concomitant]
     Active Substance: CARVEDILOL
  12. ALLOPURINOL. [Concomitant]
     Active Substance: ALLOPURINOL

REACTIONS (1)
  - Diarrhoea [Recovering/Resolving]

NARRATIVE: CASE EVENT DATE: 20150910
